FAERS Safety Report 13881839 (Version 1)
Quarter: 2017Q3

REPORT INFORMATION
  Report Type: Spontaneous
  Country: US (occurrence: US)
  Receive Date: 20170818
  Receipt Date: 20170818
  Transmission Date: 20171127
  Serious: Yes (Other)
  Sender: FDA-Public Use
  Company Number: US-BAYER-2017-152216

PATIENT
  Age: 72 Year
  Sex: Female
  Weight: 53.52 kg

DRUGS (16)
  1. BIOTIN [Concomitant]
     Active Substance: BIOTIN
  2. COENZYME Q10 [Concomitant]
     Active Substance: UBIDECARENONE
  3. ALEVE [Suspect]
     Active Substance: NAPROXEN SODIUM
     Indication: MUSCULOSKELETAL PAIN
     Dosage: UNK UNK, QD
  4. DENOSUMAB [Suspect]
     Active Substance: DENOSUMAB
     Indication: OSTEOPOROSIS
     Dosage: 60 MG, UNK
     Dates: start: 20170119, end: 20170710
  5. VITAMIN D3 [Concomitant]
     Active Substance: CHOLECALCIFEROL
  6. MICROGENICS PROBIOTIC 8 [Concomitant]
     Active Substance: LACTOBACILLUS ACIDOPHILUS
  7. LASIX [Concomitant]
     Active Substance: FUROSEMIDE
  8. CITRACAL PLUS BONE DENSITY BUILDER [Suspect]
     Active Substance: CALCIUM\CHOLECALCIFEROL\MINERALS
     Indication: PRODUCT USED FOR UNKNOWN INDICATION
  9. SYNTHROID [Concomitant]
     Active Substance: LEVOTHYROXINE SODIUM
  10. DALMANE [Concomitant]
     Active Substance: FLURAZEPAM HYDROCHLORIDE
  11. MAGNESIUM CITRATE. [Concomitant]
     Active Substance: MAGNESIUM CITRATE
  12. ECHINACEA [Concomitant]
     Active Substance: ECHINACEA, UNSPECIFIED
  13. ALOE VERA [Concomitant]
     Active Substance: ALOE VERA LEAF
  14. CITRACAL (CALCIUM CITRATE\CHOLECALCIFEROL) [Suspect]
     Active Substance: CALCIUM CITRATE\CHOLECALCIFEROL
  15. GLUCOSAMINE SULFATE [Concomitant]
     Active Substance: GLUCOSAMINE SULFATE
  16. RESVERATROL [Concomitant]
     Active Substance: DIETARY SUPPLEMENT\RESVERATROL

REACTIONS (11)
  - Lichenoid keratosis [Not Recovered/Not Resolved]
  - Temporal arteritis [Unknown]
  - Mammogram abnormal [None]
  - Rash generalised [Unknown]
  - Alopecia [Unknown]
  - Hip arthroplasty [Unknown]
  - Oedema [Unknown]
  - Musculoskeletal pain [Not Recovered/Not Resolved]
  - Vitamin D deficiency [Unknown]
  - Mammogram [Unknown]
  - Interstitial granulomatous dermatitis [Not Recovered/Not Resolved]

NARRATIVE: CASE EVENT DATE: 20170315
